FAERS Safety Report 15526454 (Version 2)
Quarter: 2019Q4

REPORT INFORMATION
  Report Type: Spontaneous
  Country: MX (occurrence: MX)
  Receive Date: 20181018
  Receipt Date: 20191018
  Transmission Date: 20200122
  Serious: Yes (Life-Threatening, Other)
  Sender: FDA-Public Use
  Company Number: MX-BAUSCH-BL-2018-028447

PATIENT
  Age: 19 Year
  Sex: Male

DRUGS (6)
  1. RETINOIC ACID [Suspect]
     Active Substance: TRETINOIN
     Indication: ACNE
     Dosage: CHRONIC USE
     Route: 065
  2. FLUOROMETHOLONE ACETATE [Concomitant]
     Active Substance: FLUOROMETHOLONE ACETATE
     Indication: POSTOPERATIVE CARE
  3. GATIFLOXACIN. [Concomitant]
     Active Substance: GATIFLOXACIN
     Indication: POSTOPERATIVE CARE
  4. SODIUM CARBOXYMETHYLCELLULOSE [Concomitant]
     Active Substance: CARBOXYMETHYLCELLULOSE SODIUM
     Indication: POSTOPERATIVE CARE
  5. PREDNISOLONE ACETATE. [Suspect]
     Active Substance: PREDNISOLONE ACETATE
     Indication: VISION BLURRED
  6. PREDNISOLONE ACETATE. [Suspect]
     Active Substance: PREDNISOLONE ACETATE
     Indication: CORNEAL FLAP COMPLICATION
     Route: 061

REACTIONS (2)
  - Keratopathy [Recovered/Resolved]
  - Intraocular pressure increased [Recovered/Resolved]
